FAERS Safety Report 5844715-7 (Version None)
Quarter: 2008Q3

REPORT INFORMATION
  Report Type: 
  Country: None (occurrence: None)
  Receive Date: 20080814
  Receipt Date: 20080711
  Transmission Date: 20090109
  Serious: No
  Sender: FDA-Public Use
  Company Number: US-BAYER-200828725NA

PATIENT
  Age: 39 Year
  Sex: Female
  Weight: 54 kg

DRUGS (1)
  1. ULTRAVIST 150 [Suspect]
     Indication: COMPUTERISED TOMOGRAM ABDOMEN
     Dosage: TOTAL DAILY DOSE: 100 ML
     Route: 042
     Dates: start: 20080710, end: 20080710

REACTIONS (2)
  - PRURITUS [None]
  - URTICARIA [None]
